FAERS Safety Report 7624540-7 (Version None)
Quarter: 2011Q3

REPORT INFORMATION
  Report Type: 
  Country: None (occurrence: None)
  Receive Date: 20110720
  Receipt Date: 20110714
  Transmission Date: 20111222
  Serious: Yes (Hospitalization)
  Sender: FDA-Public Use
  Company Number: IE-PFIZER INC-2011118250

PATIENT
  Age: 77 Year
  Sex: Male

DRUGS (9)
  1. WARFARIN [Concomitant]
     Dosage: UNK
     Route: 048
     Dates: start: 20110301
  2. NEBIVOLOL [Concomitant]
     Indication: HYPERTENSION
     Dosage: 5 MG, UNK
     Route: 048
  3. ZYVOX [Suspect]
     Indication: ARTHRITIS BACTERIAL
     Dosage: 600 MG, UNK
     Route: 048
     Dates: start: 20110318, end: 20110508
  4. PANTOPRAZOLE [Concomitant]
     Dosage: 40 MG, UNK
     Route: 048
  5. DIAMICRON [Concomitant]
     Dosage: 30 MG, UNK
  6. CIPROFLOXACIN [Concomitant]
  7. FRUSEMIDE [Concomitant]
     Dosage: 40 MG, UNK
     Route: 048
  8. ACETYLSALICYLIC ACID [Concomitant]
     Dosage: 75 MG, UNK
     Route: 048
  9. AMIODARONE HYDROCHLORIDE [Concomitant]
     Dosage: 200 MG, UNK
     Route: 048

REACTIONS (3)
  - ANAEMIA [None]
  - EPISTAXIS [None]
  - THROMBOCYTOPENIA [None]
